FAERS Safety Report 14604428 (Version 24)
Quarter: 2021Q2

REPORT INFORMATION
  Report Type: Spontaneous
  Country: CA (occurrence: CA)
  Receive Date: 20180306
  Receipt Date: 20210416
  Transmission Date: 20210716
  Serious: Yes (Hospitalization, Other)
  Sender: FDA-Public Use
  Company Number: CA-CELLTRION INC.-2018CA018314

PATIENT

DRUGS (35)
  1. INFLECTRA [Suspect]
     Active Substance: INFLIXIMAB-DYYB
     Dosage: 580 MG EVERY 8 WEEKS
     Route: 042
     Dates: start: 20200116
  2. INFLECTRA [Suspect]
     Active Substance: INFLIXIMAB-DYYB
     Dosage: 580 MG EVERY 8 WEEKS
     Route: 042
     Dates: start: 20200507
  3. LASIX [Concomitant]
     Active Substance: FUROSEMIDE
     Dosage: 40 MG, DAILY
     Route: 048
     Dates: start: 20180701
  4. PANTOPRAZOLE [Concomitant]
     Active Substance: PANTOPRAZOLE
     Dosage: 40 MG, 2X/DAY
     Route: 048
  5. PRADAXA [Concomitant]
     Active Substance: DABIGATRAN ETEXILATE MESYLATE
     Dosage: UNK
     Route: 065
  6. INFLECTRA [Suspect]
     Active Substance: INFLIXIMAB-DYYB
     Dosage: 600 MG EVERY 8 WEEKS
     Route: 042
     Dates: start: 20210406
  7. HYDROCORTISONE. [Concomitant]
     Active Substance: HYDROCORTISONE
     Indication: PREMEDICATION
     Dosage: 100 MG
     Route: 042
     Dates: start: 20180502
  8. INFLECTRA [Suspect]
     Active Substance: INFLIXIMAB-DYYB
     Dosage: 290 MG, EVERY 2, 6 WEEKS, THEN EVERY 8 WEEKS
     Route: 042
     Dates: start: 20180502, end: 20180502
  9. INFLECTRA [Suspect]
     Active Substance: INFLIXIMAB-DYYB
     Dosage: 580 MG, EVERY 8 WEEKS
     Route: 042
     Dates: start: 20191121
  10. INFLECTRA [Suspect]
     Active Substance: INFLIXIMAB-DYYB
     Dosage: 580 MG EVERY 8 WEEKS
     Route: 042
     Dates: start: 20201022
  11. INFLECTRA [Suspect]
     Active Substance: INFLIXIMAB-DYYB
     Indication: CROHN^S DISEASE
     Dosage: 290 MG, EVERY 2, 6 WEEKS, THEN EVERY 8 WEEKS
     Route: 042
     Dates: start: 20180124, end: 20180502
  12. INFLECTRA [Suspect]
     Active Substance: INFLIXIMAB-DYYB
     Dosage: 580 MG, EVERY 8 WEEKS
     Route: 042
     Dates: start: 20190801
  13. INFLECTRA [Suspect]
     Active Substance: INFLIXIMAB-DYYB
     Dosage: 580 MG EVERY 8 WEEKS
     Route: 042
     Dates: start: 20200702
  14. INFLECTRA [Suspect]
     Active Substance: INFLIXIMAB-DYYB
     Dosage: 580 MG EVERY 8 WEEKS
     Route: 042
     Dates: start: 20210209, end: 20210209
  15. ASA EC [Concomitant]
     Active Substance: ASPIRIN
     Dosage: 81 MG, 1X/DAY (DAILY)
     Route: 048
  16. LASIX [Concomitant]
     Active Substance: FUROSEMIDE
     Dosage: 40 MG, DAILY (STOP DATE: 28?JUN?2018)
     Route: 048
  17. PANTOPRAZOLE [Concomitant]
     Active Substance: PANTOPRAZOLE
     Dosage: 40 MG, 2X/WEEK
     Route: 048
  18. VENTOLIN [Concomitant]
     Active Substance: ALBUTEROL SULFATE
     Dosage: 1 DF (2?4 PUFFS (100MCG/DOSE INHALER) (VENTOLIN), 2?4 PUFF Q4H PRN)
     Route: 055
  19. INFLECTRA [Suspect]
     Active Substance: INFLIXIMAB-DYYB
     Dosage: 580 MG, EVERY 8 WEEKS
     Route: 042
     Dates: start: 20180629, end: 20210209
  20. INFLECTRA [Suspect]
     Active Substance: INFLIXIMAB-DYYB
     Dosage: 580 MG EVERY 8 WEEKS
     Route: 042
     Dates: start: 20201218
  21. DIPHENHYDRAMINE. [Concomitant]
     Active Substance: DIPHENHYDRAMINE
     Indication: PREMEDICATION
     Dosage: 50 MG, UNK
     Route: 048
     Dates: start: 20180502
  22. INFLECTRA [Suspect]
     Active Substance: INFLIXIMAB-DYYB
     Dosage: 290 MG, EVERY 2, 6 WEEKS, THEN EVERY 8 WEEKS
     Route: 042
     Dates: start: 20180207
  23. INFLECTRA [Suspect]
     Active Substance: INFLIXIMAB-DYYB
     Dosage: 580 MG, EVERY 8 WEEKS
     Route: 042
     Dates: start: 20181017
  24. INFLECTRA [Suspect]
     Active Substance: INFLIXIMAB-DYYB
     Dosage: 580 MG, EVERY 8 WEEKS
     Route: 042
     Dates: start: 20181212
  25. INFLECTRA [Suspect]
     Active Substance: INFLIXIMAB-DYYB
     Dosage: 580 MG, EVERY 8 WEEKS
     Route: 042
     Dates: start: 20190403
  26. AMIODARONE [Concomitant]
     Active Substance: AMIODARONE
     Dosage: 200 MG, 1X/DAY (DAILY)
     Route: 048
  27. METOPROLOL. [Concomitant]
     Active Substance: METOPROLOL
     Dosage: 100 MG, BID (2X/DAY)
     Route: 065
  28. INFLECTRA [Suspect]
     Active Substance: INFLIXIMAB-DYYB
     Dosage: 290 MG, EVERY 2, 6 WEEKS, THEN EVERY 8 WEEKS
     Route: 042
     Dates: start: 20180307
  29. INFLECTRA [Suspect]
     Active Substance: INFLIXIMAB-DYYB
     Dosage: 580 MG EVERY 8 WEEKS
     Route: 042
     Dates: start: 20200827
  30. INFLECTRA [Suspect]
     Active Substance: INFLIXIMAB-DYYB
     Dosage: 580 MG, EVERY 8 WEEKS
     Route: 042
     Dates: start: 20180822
  31. INFLECTRA [Suspect]
     Active Substance: INFLIXIMAB-DYYB
     Dosage: 580 MG, EVERY 8 WEEKS
     Route: 042
     Dates: start: 20190528
  32. INFLECTRA [Suspect]
     Active Substance: INFLIXIMAB-DYYB
     Dosage: 580 MG, EVERY 8 WEEKS
     Route: 042
     Dates: start: 20191001
  33. INFLECTRA [Suspect]
     Active Substance: INFLIXIMAB-DYYB
     Dosage: 580 MG EVERY 8 WEEKS
     Route: 042
     Dates: start: 20200312
  34. METOPROLOL. [Concomitant]
     Active Substance: METOPROLOL
     Dosage: 100 MG, 2X/DAY
     Route: 065
     Dates: start: 2018
  35. NICOTINE. [Concomitant]
     Active Substance: NICOTINE
     Dosage: 14 MG, 1X/DAY (DAILY)
     Route: 062

REACTIONS (46)
  - Pneumonia [Unknown]
  - Heart rate increased [Unknown]
  - Tachycardia [Unknown]
  - Blood creatinine increased [Not Recovered/Not Resolved]
  - Mean cell haemoglobin concentration decreased [Unknown]
  - Mean cell volume decreased [Not Recovered/Not Resolved]
  - Polychromasia [Unknown]
  - Heart rate decreased [Not Recovered/Not Resolved]
  - Fatigue [Unknown]
  - Dyspnoea [Unknown]
  - Haemoglobin decreased [Not Recovered/Not Resolved]
  - Drug level decreased [Unknown]
  - Asthenia [Unknown]
  - Blood urea increased [Unknown]
  - Haematocrit decreased [Not Recovered/Not Resolved]
  - Prothrombin time prolonged [Not Recovered/Not Resolved]
  - Red blood cell abnormality [Unknown]
  - Red blood cell morphology abnormal [Unknown]
  - Headache [Unknown]
  - Abnormal faeces [Unknown]
  - Red blood cell elliptocytes present [Unknown]
  - Melaena [Not Recovered/Not Resolved]
  - Therapeutic product effect incomplete [Unknown]
  - Blood pressure fluctuation [Unknown]
  - International normalised ratio increased [Not Recovered/Not Resolved]
  - Reticulocyte count increased [Unknown]
  - Blood pressure decreased [Unknown]
  - Blood disorder [Unknown]
  - Angiodysplasia [Unknown]
  - Hypotension [Not Recovered/Not Resolved]
  - Reticulocyte count decreased [Unknown]
  - Dizziness [Unknown]
  - Arthralgia [Unknown]
  - Mean cell haemoglobin decreased [Unknown]
  - Platelet count increased [Unknown]
  - Condition aggravated [Recovering/Resolving]
  - Off label use [Unknown]
  - Intentional product use issue [Unknown]
  - Hypochromasia [Unknown]
  - Faeces discoloured [Unknown]
  - Off label use [Unknown]
  - Anisocytosis [Unknown]
  - Microcytosis [Unknown]
  - Red blood cell count decreased [Unknown]
  - Red cell distribution width increased [Unknown]
  - Anaemia [Unknown]

NARRATIVE: CASE EVENT DATE: 20180222
